APPROVED DRUG PRODUCT: THYROSAFE
Active Ingredient: POTASSIUM IODIDE
Strength: 65MG
Dosage Form/Route: TABLET;ORAL
Application: A076350 | Product #001
Applicant: BTG INTERNATIONAL INC
Approved: Sep 10, 2002 | RLD: No | RS: Yes | Type: OTC